FAERS Safety Report 5037124-4 (Version None)
Quarter: 2006Q2

REPORT INFORMATION
  Report Type: 
  Country: None (occurrence: None)
  Receive Date: 20060622
  Receipt Date: 20060612
  Transmission Date: 20061013
  Serious: Yes (Other)
  Sender: FDA-Public Use
  Company Number: 2006-DE-03041GD

PATIENT
  Age: 40 Year
  Sex: Male

DRUGS (2)
  1. PREDNISONE [Suspect]
     Indication: PYODERMA GANGRENOSUM
     Dosage: 60 MG
  2. PREDNISONE [Suspect]
     Indication: SARCOIDOSIS
     Dosage: 60 MG

REACTIONS (9)
  - ACNE [None]
  - CONDITION AGGRAVATED [None]
  - DRUG INEFFECTIVE [None]
  - DYSPNOEA [None]
  - FUNGAL INFECTION [None]
  - PYODERMA GANGRENOSUM [None]
  - SARCOIDOSIS [None]
  - SKIN ULCER [None]
  - SPOROTRICHOSIS [None]
